FAERS Safety Report 7584641-9 (Version None)
Quarter: 2011Q2

REPORT INFORMATION
  Report Type: 
  Country: None (occurrence: None)
  Receive Date: 20110630
  Receipt Date: 20110621
  Transmission Date: 20111010
  Serious: Yes (Hospitalization, Other)
  Sender: FDA-Public Use
  Company Number: US-ABBOTT-11P-163-0734521-00

PATIENT
  Sex: Female

DRUGS (3)
  1. LEVOTHYROXINE SODIUM [Suspect]
     Indication: PRODUCT USED FOR UNKNOWN INDICATION
     Dates: end: 20090101
  2. SYNTHROID [Suspect]
     Indication: HYPOTHYROIDISM
     Dates: start: 19910101
  3. SYNTHROID [Suspect]
     Dates: start: 20090101

REACTIONS (7)
  - FEELING COLD [None]
  - BLOOD PRESSURE DECREASED [None]
  - HEART RATE DECREASED [None]
  - FATIGUE [None]
  - LOSS OF CONSCIOUSNESS [None]
  - UTERINE LEIOMYOMA [None]
  - HYPERHIDROSIS [None]
